FAERS Safety Report 5189769-9 (Version None)
Quarter: 2006Q4

REPORT INFORMATION
  Report Type: 
  Country: None (occurrence: None)
  Receive Date: 20061218
  Receipt Date: 20061208
  Transmission Date: 20070319
  Serious: Yes (Death, Life-Threatening, Other)
  Sender: FDA-Public Use
  Company Number: 2006088714

PATIENT
  Age: 56 Year
  Sex: Male

DRUGS (4)
  1. NEURONTIN [Suspect]
     Indication: BIPOLAR DISORDER
  2. LORAZEPAM [Concomitant]
  3. AMITRIPTYLINE HCL [Concomitant]
  4. ATENOLOL [Concomitant]

REACTIONS (3)
  - COMPLETED SUICIDE [None]
  - DRUG INEFFECTIVE [None]
  - GUN SHOT WOUND [None]
